FAERS Safety Report 7750243-4 (Version None)
Quarter: 2011Q3

REPORT INFORMATION
  Report Type: 
  Country: None (occurrence: None)
  Receive Date: 20110914
  Receipt Date: 20110906
  Transmission Date: 20111222
  Serious: Yes (Death, Life-Threatening, Hospitalization, Other)
  Sender: FDA-Public Use
  Company Number: NL-PFIZER INC-2011200388

PATIENT
  Age: 62 Year
  Sex: Female
  Weight: 72 kg

DRUGS (3)
  1. SUNITINIB MALATE [Suspect]
     Indication: OESOPHAGEAL CARCINOMA
     Dosage: 37.5 MG, 1X/DAY
     Route: 048
     Dates: start: 20110727, end: 20110818
  2. MORPHINE [Concomitant]
     Dosage: 40 MG, 1X/DAY
     Dates: start: 20110803, end: 20110824
  3. PANTOPRAZOLE [Concomitant]
     Dosage: 80 MG, 1X/DAY
     Dates: start: 20110726, end: 20110824

REACTIONS (4)
  - RENAL FAILURE [None]
  - MYOCARDIAL ISCHAEMIA [None]
  - DYSPNOEA [None]
  - CARDIAC FAILURE [None]
